FAERS Safety Report 19221806 (Version 1)
Quarter: 2021Q2

REPORT INFORMATION
  Report Type: Spontaneous
  Country: US (occurrence: US)
  Receive Date: 20210505
  Receipt Date: 20210505
  Transmission Date: 20210717
  Serious: Yes (Hospitalization, Other)
  Sender: FDA-Public Use
  Company Number: US-UCBSA-2021020354

PATIENT
  Age: 26 Year
  Sex: Female

DRUGS (3)
  1. BRIVARACETAM [Suspect]
     Active Substance: BRIVARACETAM
     Indication: EPILEPSY
     Dosage: UNK
  2. BRIVARACETAM [Suspect]
     Active Substance: BRIVARACETAM
     Dosage: 60 TABLETS EACH 100 MILLIGRAM (6000 MG)
     Route: 048
  3. LACOSAMIDE. [Suspect]
     Active Substance: LACOSAMIDE
     Indication: EPILEPSY
     Dosage: UNK

REACTIONS (5)
  - Intentional overdose [Unknown]
  - Hyperammonaemia [Recovering/Resolving]
  - Lactic acidosis [Recovering/Resolving]
  - Respiratory alkalosis [Unknown]
  - Suicide attempt [Unknown]
